FAERS Safety Report 4863311-1 (Version None)
Quarter: 2005Q4

REPORT INFORMATION
  Report Type: 
  Country: None (occurrence: None)
  Receive Date: 20051209
  Receipt Date: 20041215
  Transmission Date: 20060501
  Serious: Yes (Life-Threatening)
  Sender: FDA-Public Use
  Company Number: A01200406364

PATIENT
  Age: 69 Year
  Sex: Male

DRUGS (2)
  1. AMIODARONE HCL [Suspect]
     Indication: VENTRICULAR FIBRILLATION
     Dosage: 200 MG/300 MG; ORAL
     Route: 048
     Dates: start: 20040101, end: 20040801
  2. AMIODARONE HCL [Suspect]
     Indication: VENTRICULAR FIBRILLATION
     Dosage: 200 MG/300 MG; ORAL
     Route: 048
     Dates: start: 20040801

REACTIONS (12)
  - BODY TEMPERATURE DECREASED [None]
  - CARDIAC ARREST [None]
  - CARDIAC DEATH [None]
  - CARDIO-RESPIRATORY ARREST [None]
  - CARDIOMEGALY [None]
  - EJECTION FRACTION DECREASED [None]
  - ELECTROCARDIOGRAM ST SEGMENT DEPRESSION [None]
  - HEPATIC FUNCTION ABNORMAL [None]
  - IMPLANTABLE DEFIBRILLATOR MALFUNCTION [None]
  - INFLAMMATION [None]
  - SYNCOPE [None]
  - VENTRICULAR TACHYCARDIA [None]
